FAERS Safety Report 6931430-1 (Version None)
Quarter: 2010Q3

REPORT INFORMATION
  Report Type: 
  Country: None (occurrence: None)
  Receive Date: 20100816
  Receipt Date: 20100729
  Transmission Date: 20110219
  Serious: Yes (Disabling, Other)
  Sender: FDA-Public Use
  Company Number: ACO_01179_2010

PATIENT
  Sex: Female
  Weight: 67.1324 kg

DRUGS (2)
  1. AMPYRA [Suspect]
     Indication: MULTIPLE SCLEROSIS
     Dosage: 10 MG BID ORAL
     Route: 048
     Dates: start: 20100614, end: 20100707
  2. TYSABRI [Concomitant]

REACTIONS (4)
  - ACTIVITIES OF DAILY LIVING IMPAIRED [None]
  - BEDRIDDEN [None]
  - FATIGUE [None]
  - MUSCULOSKELETAL STIFFNESS [None]
